FAERS Safety Report 23733664 (Version 1)
Quarter: 2024Q2

REPORT INFORMATION
  Report Type: Spontaneous
  Country: US (occurrence: US)
  Receive Date: 20240411
  Receipt Date: 20240411
  Transmission Date: 20240716
  Serious: No
  Sender: FDA-Public Use
  Company Number: US-ABBVIE-5712473

PATIENT
  Sex: Male

DRUGS (1)
  1. LEXAPRO [Suspect]
     Active Substance: ESCITALOPRAM OXALATE
     Indication: Generalised anxiety disorder
     Dosage: FORM STRENGTH: 5 MILLIGRAM
     Route: 048

REACTIONS (3)
  - Male orgasmic disorder [Unknown]
  - Initial insomnia [Unknown]
  - Night sweats [Unknown]
